FAERS Safety Report 6440342-1 (Version None)
Quarter: 2009Q4

REPORT INFORMATION
  Report Type: 
  Country: None (occurrence: None)
  Receive Date: 20091113
  Receipt Date: 20091103
  Transmission Date: 20100525
  Serious: Yes (Other)
  Sender: FDA-Public Use
  Company Number: PHEH2009US11306

PATIENT
  Sex: Female

DRUGS (10)
  1. TASIGNA [Suspect]
     Indication: CHRONIC MYELOID LEUKAEMIA
     Dosage: 400 MG, BID
     Route: 048
     Dates: start: 20090729, end: 20090902
  2. GLEEVEC [Suspect]
  3. SPRYCEL [Suspect]
  4. CALCIUM [Concomitant]
  5. LIPITOR [Concomitant]
  6. HYDROCHLOROTHIAZIDE [Concomitant]
  7. M.V.I. [Concomitant]
  8. VITAMIN B COMPLEX CAP [Concomitant]
  9. CLARITIN [Concomitant]
  10. PRILOSEC [Concomitant]

REACTIONS (1)
  - THROMBOCYTOPENIA [None]
